FAERS Safety Report 24378985 (Version 2)
Quarter: 2025Q1

REPORT INFORMATION
  Report Type: Spontaneous
  Country: BR (occurrence: BR)
  Receive Date: 20240930
  Receipt Date: 20250127
  Transmission Date: 20250409
  Serious: Yes (Hospitalization, Other)
  Sender: AUROBINDO
  Company Number: BR-MLMSERVICE-20240917-PI190517-00246-1

PATIENT
  Age: 30 Year
  Sex: Male

DRUGS (4)
  1. OLANZAPINE [Suspect]
     Active Substance: OLANZAPINE
     Indication: Psychomotor hyperactivity
     Dosage: 20 MILLIGRAM, ONCE A DAY
     Route: 065
  2. LEVOMEPROMAZINE [Suspect]
     Active Substance: LEVOMEPROMAZINE
     Indication: Psychomotor hyperactivity
     Dosage: 600 MILLIGRAM, ONCE A DAY
     Route: 065
  3. LITHIUM [Concomitant]
     Active Substance: LITHIUM
     Indication: Psychomotor hyperactivity
     Dosage: 600 MILLIGRAM, ONCE A DAY
     Route: 065
  4. CLONAZEPAM [Concomitant]
     Active Substance: CLONAZEPAM
     Indication: Psychomotor hyperactivity
     Dosage: 6 MILLIGRAM, ONCE A DAY
     Route: 065

REACTIONS (1)
  - Electrocardiogram QT prolonged [Unknown]
